FAERS Safety Report 4514730-4 (Version None)
Quarter: 2004Q4

REPORT INFORMATION
  Report Type: 
  Country: None (occurrence: None)
  Receive Date: 20041124
  Receipt Date: 20041124
  Transmission Date: 20050328
  Serious: Yes (Hospitalization)
  Sender: FDA-Public Use
  Company Number: None

PATIENT
  Age: 80 Year
  Sex: Male
  Weight: 68.0396 kg

DRUGS (2)
  1. RITUXIMAB  500MG  GENENTECH [Suspect]
     Indication: CHRONIC LYMPHOCYTIC LEUKAEMIA
     Dosage: 686MG  WEEKLY INTRAVENOUS
     Route: 042
     Dates: start: 20040812, end: 20040902
  2. RITUXIMAB  100MG  GENENTECH [Suspect]
     Dates: start: 20040812, end: 20040902

REACTIONS (2)
  - HEPATITIS B [None]
  - TREATMENT NONCOMPLIANCE [None]
